FAERS Safety Report 5794493-5 (Version None)
Quarter: 2008Q2

REPORT INFORMATION
  Report Type: 
  Country: None (occurrence: None)
  Receive Date: 20080630
  Receipt Date: 20080619
  Transmission Date: 20081010
  Serious: Yes (Hospitalization)
  Sender: FDA-Public Use
  Company Number: DE-JNJFOC-20080600862

PATIENT
  Age: 74 Year
  Sex: Female
  Weight: 52 kg

DRUGS (1)
  1. DOXORUBICIN HCL [Suspect]
     Indication: BREAST CANCER METASTATIC
     Dosage: FIRST INFUSION
     Route: 042

REACTIONS (1)
  - ATRIAL FIBRILLATION [None]
